FAERS Safety Report 10708190 (Version 1)
Quarter: 2015Q1

REPORT INFORMATION
  Report Type: Spontaneous
  Country: US (occurrence: US)
  Receive Date: 20150113
  Receipt Date: 20150113
  Transmission Date: 20150721
  Serious: Yes (Death)
  Sender: FDA-Public Use
  Company Number: US-BAYER-2015-003793

PATIENT
  Age: 29 Year
  Sex: Male

DRUGS (5)
  1. HEROIN [Suspect]
     Active Substance: DIACETYLMORPHINE
  2. OXYCODONE [Suspect]
     Active Substance: OXYCODONE
  3. DIPHENHYDRAMINE HYDROCHLORIDE. [Suspect]
     Active Substance: DIPHENHYDRAMINE HYDROCHLORIDE
     Dosage: UNK
  4. QUININE [Suspect]
     Active Substance: QUININE
  5. CODEINE [Suspect]
     Active Substance: CODEINE

REACTIONS (1)
  - Drug abuse [Fatal]
